FAERS Safety Report 9254424 (Version 5)
Quarter: 2013Q3

REPORT INFORMATION
  Report Type: Spontaneous
  Country: JP (occurrence: JP)
  Receive Date: 20130425
  Receipt Date: 20130913
  Transmission Date: 20140515
  Serious: No
  Sender: FDA-Public Use
  Company Number: JP-BRISTOL-MYERS SQUIBB COMPANY-18803932

PATIENT
  Age: 86 Year
  Sex: Female

DRUGS (8)
  1. ELIQUIS [Suspect]
     Indication: EMBOLISM
     Route: 048
     Dates: start: 20130319, end: 20130409
  2. ALDACTONE A [Concomitant]
     Route: 048
  3. LASIX [Concomitant]
     Dosage: GRANULES
     Route: 048
  4. DONEPEZIL [Concomitant]
     Route: 048
  5. RANITIDINE [Concomitant]
     Route: 048
  6. ARTIST [Concomitant]
     Route: 048
  7. ALLOZYM [Concomitant]
     Route: 048
  8. LAXOBERON [Concomitant]
     Route: 048

REACTIONS (1)
  - Yellow skin [Recovered/Resolved]
